FAERS Safety Report 4539586-5 (Version None)
Quarter: 2004Q4

REPORT INFORMATION
  Report Type: 
  Country: None (occurrence: None)
  Receive Date: 20041227
  Receipt Date: 20041227
  Transmission Date: 20050328
  Serious: Yes (Other)
  Sender: FDA-Public Use
  Company Number: None

PATIENT
  Age: 50 Year
  Sex: Female
  Weight: 86.1834 kg

DRUGS (2)
  1. CELEBREX [Suspect]
     Indication: FLAT FEET
     Dosage: 1/DAY
  2. CELEBREX [Suspect]
     Indication: TENDONITIS
     Dosage: 1/DAY

REACTIONS (6)
  - ARRHYTHMIA [None]
  - HEART RATE INCREASED [None]
  - HYPERTENSION [None]
  - PALPITATIONS [None]
  - SLEEP DISORDER [None]
  - TINNITUS [None]
